FAERS Safety Report 21566552 (Version 2)
Quarter: 2022Q4

REPORT INFORMATION
  Report Type: Spontaneous
  Country: CO (occurrence: CO)
  Receive Date: 20221108
  Receipt Date: 20221109
  Transmission Date: 20230113
  Serious: Yes (Other)
  Sender: FDA-Public Use
  Company Number: CO-PFIZER INC-PV202200089824

PATIENT
  Age: 68 Year
  Sex: Female

DRUGS (1)
  1. ENBREL [Suspect]
     Active Substance: ETANERCEPT
     Indication: Rheumatoid arthritis
     Dosage: 50 MG, WEEKLY
     Route: 058
     Dates: start: 20220916

REACTIONS (5)
  - Urinary tract infection [Recovering/Resolving]
  - Device issue [Unknown]
  - Injection site pain [Unknown]
  - Urticaria [Recovered/Resolved]
  - Injection site urticaria [Unknown]

NARRATIVE: CASE EVENT DATE: 20220916
